FAERS Safety Report 15509045 (Version 1)
Quarter: 2018Q4

REPORT INFORMATION
  Report Type: Spontaneous
  Country: US (occurrence: US)
  Receive Date: 20181016
  Receipt Date: 20181016
  Transmission Date: 20190205
  Serious: Yes (Disabling)
  Sender: FDA-Public Use
  Company Number: None

PATIENT
  Age: 56 Year
  Sex: Female
  Weight: 51.75 kg

DRUGS (1)
  1. AMIXICILLIN 500MG CAPSULES X20 PILLS [Suspect]
     Active Substance: AMOXICILLIN
     Indication: PHARYNGITIS STREPTOCOCCAL
     Dosage: ?          QUANTITY:20 CAPSULE(S);?
     Route: 048
     Dates: start: 20181005, end: 20181015

REACTIONS (4)
  - Abdominal pain [None]
  - Nausea [None]
  - Weight decreased [None]
  - Decreased appetite [None]

NARRATIVE: CASE EVENT DATE: 20181006
